FAERS Safety Report 17492916 (Version 3)
Quarter: 2020Q4

REPORT INFORMATION
  Report Type: Spontaneous
  Country: NL (occurrence: NL)
  Receive Date: 20200303
  Receipt Date: 20201108
  Transmission Date: 20210113
  Serious: Yes (Death, Life-Threatening, Hospitalization, Other)
  Sender: FDA-Public Use
  Company Number: NL-JNJFOC-20200301000

PATIENT
  Age: 74 Year
  Sex: Female

DRUGS (60)
  1. COFACT [Suspect]
     Active Substance: COAGULATION FACTOR IX HUMAN\COAGULATION FACTOR VII HUMAN\COAGULATION FACTOR X HUMAN\PROTEIN C\PROTEIN S HUMAN\PROTHROMBIN
     Indication: CEREBRAL HAEMORRHAGE
  2. NIFEDIPINE. [Concomitant]
     Active Substance: NIFEDIPINE
     Dosage: 5 MG
     Dates: start: 20191203, end: 20191203
  3. PROPOFOL. [Concomitant]
     Active Substance: PROPOFOL
     Dosage: 10 MG/ML
     Dates: start: 20191128, end: 20191128
  4. PROPOFOL. [Concomitant]
     Active Substance: PROPOFOL
     Dosage: 10 MG/ML
     Dates: start: 20191208, end: 20191208
  5. POTASSIUM CHLORIDE. [Concomitant]
     Active Substance: POTASSIUM CHLORIDE
     Dosage: 75 MG/ML
     Dates: start: 20191128
  6. POTASSIUM CHLORIDE. [Concomitant]
     Active Substance: POTASSIUM CHLORIDE
     Dosage: 75 MG/ML
     Dates: start: 20191207
  7. GLUCOSE 5% BRAUN [Concomitant]
     Active Substance: DEXTROSE
     Dosage: UNK
     Dates: start: 20191128, end: 20191130
  8. RIVAROXABAN [Suspect]
     Active Substance: RIVAROXABAN
     Indication: ATRIAL FIBRILLATION
     Route: 048
     Dates: start: 20171207, end: 20191127
  9. AMIODARONE [Concomitant]
     Active Substance: AMIODARONE
     Dosage: UNK
     Dates: start: 20191209
  10. NIFEDIPINE. [Concomitant]
     Active Substance: NIFEDIPINE
     Dosage: 5 MG
     Dates: start: 20191207
  11. ATROPINE. [Concomitant]
     Active Substance: ATROPINE
     Dosage: 0.5 MG/ML
     Dates: start: 20191128, end: 20191208
  12. PROPOFOL. [Concomitant]
     Active Substance: PROPOFOL
     Dosage: 10 MG/ML
     Dates: start: 20191128, end: 20191128
  13. CEFAZOLIN [Concomitant]
     Active Substance: CEFAZOLIN
     Dosage: 100 MG/ML
     Dates: start: 20191128, end: 20191128
  14. FISH OIL OMEGA 3 [Concomitant]
     Active Substance: FISH OIL
     Dosage: UNK
  15. INSULIN ASPART [Concomitant]
     Active Substance: INSULIN ASPART
     Dosage: UNK
     Dates: end: 20191127
  16. CLONIDINE. [Concomitant]
     Active Substance: CLONIDINE
     Dosage: UNK
     Dates: start: 20191130, end: 20191130
  17. FUROSEMIDE. [Concomitant]
     Active Substance: FUROSEMIDE
     Dosage: 10 MG/ML
     Dates: start: 20191128, end: 20191128
  18. ONDANSETRON [Concomitant]
     Active Substance: ONDANSETRON
     Dosage: 2 MG/ML
     Dates: start: 20191127, end: 20191127
  19. GLUCOSE 5% BRAUN [Concomitant]
     Active Substance: DEXTROSE
     Dosage: UNK
     Dates: start: 20191127, end: 20191127
  20. MAGNESIUM SULFATE. [Concomitant]
     Active Substance: MAGNESIUM SULFATE
     Dosage: 2000 MG
     Dates: start: 20191201, end: 20191201
  21. METOPROLOL. [Suspect]
     Active Substance: METOPROLOL
     Indication: HYPERTENSION
     Dosage: 100 MG, QD
     Route: 048
  22. INSULIN ASPART [Concomitant]
     Active Substance: INSULIN ASPART
     Dosage: UNK
  23. PANTOPRAZOLE [Concomitant]
     Active Substance: PANTOPRAZOLE
     Dosage: 20 MG
     Dates: start: 20191127
  24. AMIODARONE [Concomitant]
     Active Substance: AMIODARONE
     Dosage: UNK
     Dates: start: 20191201, end: 20191201
  25. NIFEDIPINE. [Concomitant]
     Active Substance: NIFEDIPINE
     Dosage: 5 MG
     Dates: start: 20191202, end: 20191202
  26. FUROSEMIDE. [Concomitant]
     Active Substance: FUROSEMIDE
     Dosage: 10 MG/ML
     Dates: start: 20191130, end: 20191130
  27. LIDOCAINE. [Concomitant]
     Active Substance: LIDOCAINE
     Dosage: 10 MG/ML
     Dates: start: 20191128, end: 20191128
  28. SUFENTANIL [Concomitant]
     Active Substance: SUFENTANIL
     Dosage: 5 MCG ML
     Dates: start: 20191128, end: 20191128
  29. PEPTAMEN AF [Concomitant]
     Dosage: UNK
     Dates: start: 20191128, end: 20191224
  30. MOVICOLON [Concomitant]
     Active Substance: POLYETHYLENE GLYCOL 3350\POTASSIUM CHLORIDE\SODIUM BICARBONATE\SODIUM CHLORIDE
     Dosage: 1.8 G
     Dates: start: 20191206
  31. MAGNESIUM SULFATE. [Concomitant]
     Active Substance: MAGNESIUM SULFATE
     Dosage: 2000 MG
     Dates: start: 20191203, end: 20191203
  32. MAGNESIUM SULFATE. [Concomitant]
     Active Substance: MAGNESIUM SULFATE
     Dosage: 2000 MG
     Dates: start: 20191209
  33. COFACT [Suspect]
     Active Substance: COAGULATION FACTOR IX HUMAN\COAGULATION FACTOR VII HUMAN\COAGULATION FACTOR X HUMAN\PROTEIN C\PROTEIN S HUMAN\PROTHROMBIN
     Indication: PROCOAGULANT THERAPY
  34. INSULIN GLARGINE [Concomitant]
     Active Substance: INSULIN GLARGINE
     Dosage: UNK
     Dates: end: 20191227
  35. DIAMOX SEQUELS [Concomitant]
     Active Substance: ACETAZOLAMIDE
     Dosage: UNK
     Dates: start: 20191203, end: 20191203
  36. FUROSEMIDE. [Concomitant]
     Active Substance: FUROSEMIDE
     Dosage: 10 MG/ML
     Dates: start: 20191202, end: 20191202
  37. ROCURONIUM [Concomitant]
     Active Substance: ROCURONIUM BROMIDE
     Dosage: 10 MG/ML
     Dates: start: 20191208, end: 20191208
  38. CEFOTAXIME [Concomitant]
     Active Substance: CEFOTAXIME SODIUM
     Dosage: UNK
     Dates: start: 20191128, end: 20191128
  39. MORPHINE [Concomitant]
     Active Substance: MORPHINE
     Dosage: 1 MG/ML
     Dates: start: 20191207
  40. INSULIN ASPART [Concomitant]
     Active Substance: INSULIN ASPART
     Dosage: UNK
     Dates: end: 20191127
  41. INSULIN GLARGINE [Concomitant]
     Active Substance: INSULIN GLARGINE
     Dosage: UNK
     Dates: end: 20191227
  42. AMIODARONE [Concomitant]
     Active Substance: AMIODARONE
     Dosage: UNK
     Dates: start: 20191204, end: 20191204
  43. AMIODARONE [Concomitant]
     Active Substance: AMIODARONE
     Dosage: UNK
     Dates: start: 20191209
  44. FUROSEMIDE. [Concomitant]
     Active Substance: FUROSEMIDE
     Dosage: 10 MG/ML
     Dates: start: 20191129, end: 20191129
  45. FUROSEMIDE. [Concomitant]
     Active Substance: FUROSEMIDE
     Dosage: 10 MG/ML
     Dates: start: 20191201, end: 20191201
  46. FRAXIPARINE [Concomitant]
     Active Substance: NADROPARIN CALCIUM
     Dosage: 9500 IU ML
     Dates: start: 20191127
  47. MORPHINE [Concomitant]
     Active Substance: MORPHINE
     Dosage: 1 MG/ML
     Dates: start: 20191127
  48. MAGNESIUM SULFATE. [Concomitant]
     Active Substance: MAGNESIUM SULFATE
     Dosage: 2000 MG
     Dates: start: 20191128, end: 20191128
  49. COFACT [Suspect]
     Active Substance: COAGULATION FACTOR IX HUMAN\COAGULATION FACTOR VII HUMAN\COAGULATION FACTOR X HUMAN\PROTEIN C\PROTEIN S HUMAN\PROTHROMBIN
     Indication: HAEMOSTASIS
     Dosage: 3000 IE, ONCE
     Route: 042
     Dates: start: 20191127, end: 20191127
  50. LABETALOL [Suspect]
     Active Substance: LABETALOL\LABETALOL HYDROCHLORIDE
     Indication: HAEMORRHAGE INTRACRANIAL
     Dosage: 0 - 75 MG/H, INTRAVENOUS
     Route: 042
     Dates: start: 20191127, end: 20191128
  51. ONDANSETRON [Concomitant]
     Active Substance: ONDANSETRON
     Dosage: 2 MG/ML
     Dates: start: 20191128, end: 20191128
  52. STEROFUNDIN ISO [Concomitant]
     Dosage: 500 ML
     Dates: start: 20191128, end: 20191128
  53. CALCIUM CARBONATE. [Concomitant]
     Active Substance: CALCIUM CARBONATE
     Dosage: 500/800
  54. PHOSPHATE                          /01684601/ [Concomitant]
     Dosage: 1 MM OL ML
     Dates: start: 20191204, end: 20191204
  55. DIAMOX SEQUELS [Concomitant]
     Active Substance: ACETAZOLAMIDE
     Dosage: UNK
     Dates: start: 20191130, end: 20191203
  56. NIFEDIPINE. [Concomitant]
     Active Substance: NIFEDIPINE
     Dosage: 5 MG
     Dates: start: 20191203
  57. ROCURONIUM [Concomitant]
     Active Substance: ROCURONIUM BROMIDE
     Dosage: 10 MG/ML
     Dates: start: 20191128, end: 20191208
  58. STEROFUNDIN ISO [Concomitant]
     Dosage: 500 ML
     Dates: start: 20191208, end: 20191209
  59. MAGNESIUM SULFATE. [Concomitant]
     Active Substance: MAGNESIUM SULFATE
     Dosage: 2000 MG
     Dates: start: 20191201, end: 20191201
  60. PHOSPHATE                          /01684601/ [Concomitant]
     Dosage: 1 MM OL ML
     Dates: start: 20191203, end: 20191203

REACTIONS (7)
  - Respiratory failure [Fatal]
  - Pneumonia [Recovering/Resolving]
  - Fall [Unknown]
  - Pulseless electrical activity [Recovered/Resolved]
  - Cerebral haemorrhage [Unknown]
  - Hydrocephalus [Recovering/Resolving]
  - Hypotension [Recovered/Resolved]

NARRATIVE: CASE EVENT DATE: 20191127
